FAERS Safety Report 10651304 (Version 3)
Quarter: 2015Q1

REPORT INFORMATION
  Report Type: Report from Study
  Country: DZ (occurrence: DZ)
  Receive Date: 20141215
  Receipt Date: 20150219
  Transmission Date: 20150720
  Serious: Yes (Death, Hospitalization, Other)
  Sender: FDA-Public Use
  Company Number: DZ-TAKEDA-2013-02269

PATIENT
  Age: 62 Year
  Sex: Male

DRUGS (6)
  1. VANCOMYCINE PCH [Concomitant]
     Active Substance: VANCOMYCIN
     Dosage: UNK
     Dates: start: 20130119, end: 20130202
  2. PREDNISONE. [Concomitant]
     Active Substance: PREDNISONE
     Dosage: UNK
     Dates: start: 20130113, end: 20130123
  3. MELPHALAN [Concomitant]
     Active Substance: MELPHALAN
     Indication: PLASMA CELL MYELOMA
     Dosage: UNK
     Dates: start: 20130113, end: 20130123
  4. VELCADE [Suspect]
     Active Substance: BORTEZOMIB
     Indication: PLASMA CELL MYELOMA
     Dosage: 2.7 MG, UNK
     Route: 042
     Dates: start: 20120909, end: 20130123
  5. NIFUROXAZIDE [Concomitant]
     Active Substance: NIFUROXAZIDE
     Dosage: UNK
     Dates: start: 20130119, end: 20130202
  6. METRONIDAZOLE. [Concomitant]
     Active Substance: METRONIDAZOLE
     Dosage: UNK
     Dates: start: 20130121, end: 20130202

REACTIONS (2)
  - Lung disorder [Fatal]
  - Plasmacytoma [Recovered/Resolved]

NARRATIVE: CASE EVENT DATE: 20130113
